FAERS Safety Report 6436388-X (Version None)
Quarter: 2009Q4

REPORT INFORMATION
  Report Type: 
  Country: None (occurrence: None)
  Receive Date: 20091111
  Receipt Date: 20091103
  Transmission Date: 20100525
  Serious: Yes (Hospitalization)
  Sender: FDA-Public Use
  Company Number: PHHO2009DK13681

PATIENT

DRUGS (1)
  1. CGS 20267 T30748+TAB [Suspect]
     Indication: BREAST CANCER
     Dosage: 2.5 MG, UNK
     Route: 048
     Dates: start: 20050801

REACTIONS (3)
  - SURGERY [None]
  - URGE INCONTINENCE [None]
  - UTERINE PROLAPSE [None]
